FAERS Safety Report 6446309-1 (Version None)
Quarter: 2009Q4

REPORT INFORMATION
  Report Type: 
  Country: None (occurrence: None)
  Receive Date: 20091119
  Receipt Date: 20091110
  Transmission Date: 20100525
  Serious: Yes (Hospitalization)
  Sender: FDA-Public Use
  Company Number: US-ASTRAZENECA-2009SE22565

PATIENT
  Age: 47 Year
  Sex: Male
  Weight: 81.6 kg

DRUGS (2)
  1. SEROQUEL XR [Suspect]
     Route: 048
     Dates: start: 20091001
  2. SEROQUEL XR [Suspect]
     Route: 048

REACTIONS (7)
  - AGITATION [None]
  - CONSTIPATION [None]
  - INSOMNIA [None]
  - NERVOUSNESS [None]
  - RESTLESSNESS [None]
  - SOMNOLENCE [None]
  - VISION BLURRED [None]
